FAERS Safety Report 7555294-0 (Version None)
Quarter: 2011Q2

REPORT INFORMATION
  Report Type: 
  Country: None (occurrence: None)
  Receive Date: 20110617
  Receipt Date: 20110614
  Transmission Date: 20111010
  Serious: Yes (Death)
  Sender: FDA-Public Use
  Company Number: PHHY2010DK81629

PATIENT
  Sex: Male
  Weight: 87 kg

DRUGS (6)
  1. BUDESONIDE [Concomitant]
     Indication: ASTHMA
     Dosage: 400 MICROGRAM(S)/DOSE
     Route: 055
     Dates: start: 20090615, end: 20101013
  2. MAGNESIUM [Concomitant]
     Dosage: UNK UKN, UNK
  3. RITALIN [Suspect]
     Indication: ATTENTION DEFICIT/HYPERACTIVITY DISORDER
     Dosage: 7 DF, QD
     Route: 048
     Dates: start: 19980227, end: 20101013
  4. ALBUTEROL [Concomitant]
     Indication: ASTHMA
     Dosage: UNK UKN, UNK
  5. CORDARONE [Concomitant]
     Dosage: UNK UKN, UNK
  6. EPINEPHRINE [Concomitant]
     Dosage: UNK UKN, UNK

REACTIONS (9)
  - WOLFF-PARKINSON-WHITE SYNDROME [None]
  - BLOOD PRESSURE INCREASED [None]
  - INTRACRANIAL PRESSURE INCREASED [None]
  - ANOXIA [None]
  - MYOCARDIAL INFARCTION [None]
  - VENTRICULAR FIBRILLATION [None]
  - VENTRICULAR TACHYCARDIA [None]
  - GASTROINTESTINAL NECROSIS [None]
  - PUPILLARY REFLEX IMPAIRED [None]
